FAERS Safety Report 6237932-8 (Version None)
Quarter: 2009Q2

REPORT INFORMATION
  Report Type: 
  Country: None (occurrence: None)
  Receive Date: 20090622
  Receipt Date: 20070717
  Transmission Date: 20091009
  Serious: Yes (Other)
  Sender: FDA-Public Use
  Company Number: US-ASTRAZENECA-2006UW08894

PATIENT
  Age: 718 Month
  Sex: Female
  Weight: 85.3 kg

DRUGS (20)
  1. SEROQUEL [Suspect]
     Indication: ANXIETY
     Route: 048
     Dates: start: 20051001, end: 20061201
  2. SEROQUEL [Suspect]
     Indication: DEPRESSION
     Route: 048
     Dates: start: 20051001, end: 20061201
  3. SEROQUEL [Suspect]
     Indication: SCHIZOPHRENIA
     Route: 048
     Dates: start: 20051001, end: 20061201
  4. SEROQUEL [Suspect]
     Route: 048
     Dates: start: 20060703
  5. SEROQUEL [Suspect]
     Route: 048
     Dates: start: 20060703
  6. SEROQUEL [Suspect]
     Route: 048
     Dates: start: 20060703
  7. RISPERDAL [Suspect]
     Indication: ANXIETY
     Dosage: 0.5 MG - 3 MG
     Dates: start: 20000901
  8. RISPERDAL [Suspect]
     Indication: DEPRESSION
     Dosage: 0.5 MG - 3 MG
     Dates: start: 20000901
  9. RISPERDAL [Suspect]
     Indication: SCHIZOPHRENIA
     Dosage: 0.5 MG - 3 MG
     Dates: start: 20000901
  10. ZYPREXA [Suspect]
     Indication: ANXIETY
     Dates: start: 20050101
  11. ZYPREXA [Suspect]
     Indication: SCHIZOPHRENIA
     Dates: start: 20050101
  12. ASPIRIN [Concomitant]
     Route: 048
     Dates: start: 20050912
  13. LORATADINE [Concomitant]
     Route: 048
     Dates: start: 20050912
  14. IMODIUM [Concomitant]
     Route: 048
     Dates: start: 20050912
  15. GLUCOPHAGE [Concomitant]
     Route: 048
     Dates: start: 20050912
  16. ACTOS [Concomitant]
     Route: 048
     Dates: start: 20050912
  17. ATIVAN [Concomitant]
     Route: 048
     Dates: start: 20050912
  18. LEXAPRO [Concomitant]
     Route: 048
     Dates: start: 20050912
  19. NEURONTIN [Concomitant]
     Route: 048
     Dates: start: 20050912
  20. LIPITOR [Concomitant]
     Route: 048
     Dates: start: 20050912

REACTIONS (3)
  - DIABETES MELLITUS [None]
  - DIABETES MELLITUS INADEQUATE CONTROL [None]
  - DIABETIC NEUROPATHY [None]
